FAERS Safety Report 7894558-8 (Version None)
Quarter: 2011Q4

REPORT INFORMATION
  Report Type: 
  Country: None (occurrence: None)
  Receive Date: 20111106
  Receipt Date: 20110816
  Transmission Date: 20120403
  Serious: No
  Sender: FDA-Public Use
  Company Number: US-AMGEN-USASP2011041746

PATIENT
  Age: 62 Year
  Sex: Female

DRUGS (3)
  1. METFORMIN HCL [Concomitant]
  2. ENBREL [Suspect]
     Indication: ANKYLOSING SPONDYLITIS
     Dosage: 50 MG, QWK
     Dates: start: 20110731
  3. PLAQUENIL [Concomitant]
     Dosage: 1 MG IN 2 DAYS
     Dates: start: 20090101

REACTIONS (4)
  - HEADACHE [None]
  - BLOOD GLUCOSE DECREASED [None]
  - NAUSEA [None]
  - DIZZINESS [None]
